FAERS Safety Report 5870519-5 (Version None)
Quarter: 2008Q3

REPORT INFORMATION
  Report Type: 
  Country: None (occurrence: None)
  Receive Date: 20080829
  Receipt Date: 20080815
  Transmission Date: 20090109
  Serious: Yes (Other)
  Sender: FDA-Public Use
  Company Number: FABR-11256

PATIENT
  Age: 38 Year
  Sex: Male
  Weight: 90 kg

DRUGS (9)
  1. FABRAZYME [Suspect]
     Indication: FABRY'S DISEASE
     Dosage: 5 MG, INTRAVENOUS, 90 MG, Q2W, INTRAVENOUS
     Route: 042
     Dates: start: 20030729, end: 20051003
  2. FABRAZYME [Suspect]
     Indication: FABRY'S DISEASE
     Dosage: 5 MG, INTRAVENOUS, 90 MG, Q2W, INTRAVENOUS
     Route: 042
     Dates: start: 20060517
  3. FABRAZYME [Suspect]
  4. FABRAZYME [Suspect]
  5. LORAZEPAM [Concomitant]
  6. BENADRYL [Concomitant]
  7. OXYCONTIN [Concomitant]
  8. TOPAMAX [Concomitant]
  9. PROZAC [Concomitant]

REACTIONS (10)
  - BLOOD IMMUNOGLOBULIN E INCREASED [None]
  - CHEST DISCOMFORT [None]
  - DRUG ADMINISTRATION ERROR [None]
  - EYELID OEDEMA [None]
  - FATIGUE [None]
  - FEELING JITTERY [None]
  - INFUSION RELATED REACTION [None]
  - THROAT IRRITATION [None]
  - URTICARIA [None]
  - WHEEZING [None]
